FAERS Safety Report 8824551 (Version 5)
Quarter: 2013Q4

REPORT INFORMATION
  Report Type: Spontaneous
  Country: US (occurrence: US)
  Receive Date: 20121004
  Receipt Date: 20131126
  Transmission Date: 20140711
  Serious: Yes (Hospitalization, Other)
  Sender: FDA-Public Use
  Company Number: US-SANOFI-AVENTIS-2012SA071315

PATIENT
  Age: 77 Year
  Sex: Female
  Weight: 73 kg

DRUGS (18)
  1. MULTAQ [Suspect]
     Indication: PRODUCT USED FOR UNKNOWN INDICATION
     Route: 065
  2. ASCORBIC ACID [Concomitant]
     Dates: start: 20080219
  3. COENZYME Q10 [Concomitant]
     Dates: start: 20101027
  4. CHOLECALCIFEROL [Concomitant]
     Dates: start: 20101027
  5. WARFARIN [Concomitant]
     Dates: start: 20130524
  6. ERGOCALCIFEROL [Concomitant]
     Dosage: ONE CVAPSULE DAILY
     Route: 048
     Dates: start: 20101012
  7. GLUCOSAMINE HYDROCHLORIDE [Concomitant]
     Dosage: 2 TABLETS ORALY 2 TIMES A DAY
     Route: 048
     Dates: start: 20101012
  8. VITAMIN E [Concomitant]
     Route: 048
     Dates: end: 20101012
  9. OMEGA-3 POLYUNSATURATED FATTY ACID [Concomitant]
     Dosage: 2 CAPSULES ORALLY BY MOUTH EARLY MORNING
     Dates: start: 20101012, end: 20121211
  10. IBUPROFEN [Concomitant]
     Route: 048
     Dates: start: 20101012, end: 20101027
  11. VITAMIN C [Concomitant]
     Dosage: TAKE 1 CAPSULE BY MOUTH DAILY
     Route: 048
     Dates: start: 20101012
  12. OMEPRAZOLE MAGNESIUM [Concomitant]
     Dosage: ONE TABLET DAILY BY MOUTH
     Route: 048
     Dates: end: 20101027
  13. NORETHTN-ETH ESTRAD TRTPHASTC [Concomitant]
     Dates: start: 20090728
  14. FIORICET [Concomitant]
     Dosage: 325-40-50 MG ORAL TABLET
  15. DHEA [Concomitant]
  16. PROGESTERONE [Concomitant]
  17. ESTRADIOL [Concomitant]
  18. LISINOPRIL [Concomitant]
     Route: 048

REACTIONS (15)
  - Hemiparesis [Unknown]
  - Speech disorder [Unknown]
  - Facial paresis [Unknown]
  - Confusional state [Unknown]
  - Headache [Unknown]
  - Visual impairment [Unknown]
  - Anxiety [Unknown]
  - Depression [Unknown]
  - Convulsion [Recovered/Resolved]
  - Arterial stenosis [Unknown]
  - Bullous lung disease [Unknown]
  - Arteriosclerosis [Unknown]
  - Cerebrovascular accident [Unknown]
  - Dizziness [Unknown]
  - Nausea [Unknown]
